FAERS Safety Report 7301651-7 (Version None)
Quarter: 2011Q1

REPORT INFORMATION
  Report Type: 
  Country: None (occurrence: None)
  Receive Date: 20110218
  Receipt Date: 20110208
  Transmission Date: 20110831
  Serious: Yes (Other)
  Sender: FDA-Public Use
  Company Number: JP-ELI_LILLY_AND_COMPANY-JP201011004670

PATIENT
  Sex: Female
  Weight: 45.8 kg

DRUGS (5)
  1. CYMBALTA [Suspect]
     Indication: DEPRESSION
     Dosage: 20MG, EACH MORING
     Route: 048
     Dates: start: 20100922, end: 20100928
  2. CYMBALTA [Suspect]
     Dosage: 20 MG, EACH MORNING
     Route: 048
     Dates: start: 20101002, end: 20101006
  3. CYMBALTA [Suspect]
     Dosage: 40 MG, EACH MORNING
     Route: 048
     Dates: start: 20100929, end: 20101001
  4. ALPRAZOLAM [Concomitant]
     Indication: DEPRESSION
     Dosage: 0.4 MG, 3/D
     Route: 048
     Dates: start: 20100922
  5. FLUNITRAZEPAM [Concomitant]
     Indication: DEPRESSION
     Dosage: 1 MG, DAILY (1/D)
     Route: 048
     Dates: start: 20100922

REACTIONS (1)
  - WHITE BLOOD CELL COUNT DECREASED [None]
